FAERS Safety Report 23383869 (Version 2)
Quarter: 2024Q1

REPORT INFORMATION
  Report Type: Spontaneous
  Country: US (occurrence: US)
  Receive Date: 20240109
  Receipt Date: 20240110
  Transmission Date: 20240410
  Serious: Yes (Death, Hospitalization)
  Sender: FDA-Public Use
  Company Number: US-BAYER-2024A002001

PATIENT
  Age: 24 Year
  Sex: Female

DRUGS (8)
  1. LORATADINE [Suspect]
     Active Substance: LORATADINE
     Route: 048
  2. NAPROXEN SODIUM [Suspect]
     Active Substance: NAPROXEN\NAPROXEN SODIUM
     Route: 048
  3. BUPROPION [Suspect]
     Active Substance: BUPROPION
  4. LAMOTRIGINE [Suspect]
     Active Substance: LAMOTRIGINE
  5. ESCITALOPRAM [Suspect]
     Active Substance: ESCITALOPRAM OXALATE
  6. AMPHETAMINE [Suspect]
     Active Substance: AMPHETAMINE
  7. DEXTROAMPHETAMINE [Suspect]
     Active Substance: DEXTROAMPHETAMINE
  8. LORAZEPAM [Suspect]
     Active Substance: LORAZEPAM

REACTIONS (3)
  - Completed suicide [Fatal]
  - Toxicity to various agents [Fatal]
  - Intentional overdose [Fatal]
